FAERS Safety Report 17202702 (Version 1)
Quarter: 2019Q4

REPORT INFORMATION
  Report Type: Spontaneous
  Country: JP (occurrence: JP)
  Receive Date: 20191226
  Receipt Date: 20191226
  Transmission Date: 20200122
  Serious: Yes (Hospitalization)
  Sender: FDA-Public Use
  Company Number: NVSC2019JP079432

PATIENT
  Age: 60 Year
  Sex: Male

DRUGS (5)
  1. OXALIPLATIN. [Suspect]
     Active Substance: OXALIPLATIN
     Indication: GASTRIC CANCER
     Dosage: 130 MG/M2
     Route: 065
  2. CAPECITABINE. [Suspect]
     Active Substance: CAPECITABINE
     Indication: GASTRIC CANCER
     Dosage: 1000 MG/M2, BID
     Route: 048
  3. TEGAFUR [Suspect]
     Active Substance: TEGAFUR
     Indication: GASTRIC CANCER
     Dosage: UNK
     Route: 065
  4. GIMERACIL [Suspect]
     Active Substance: GIMERACIL
     Indication: GASTRIC CANCER
     Dosage: UNK
     Route: 065
  5. OTERACIL [Suspect]
     Active Substance: OTERACIL
     Indication: GASTRIC CANCER
     Dosage: 100 MG/M2
     Route: 065

REACTIONS (9)
  - Lymphangiosis carcinomatosa [Unknown]
  - Decreased appetite [Recovered/Resolved]
  - Diarrhoea [Recovered/Resolved]
  - Nausea [Recovered/Resolved]
  - Dyspnoea [Unknown]
  - Metastases to central nervous system [Unknown]
  - Pleural effusion [Unknown]
  - Product use in unapproved indication [Unknown]
  - Altered state of consciousness [Unknown]
